FAERS Safety Report 8565462-7 (Version None)
Quarter: 2012Q3

REPORT INFORMATION
  Report Type: 
  Country: None (occurrence: None)
  Receive Date: 20120803
  Receipt Date: 20120722
  Transmission Date: 20120928
  Serious: Yes (Hospitalization)
  Sender: FDA-Public Use
  Company Number: IL-ELI_LILLY_AND_COMPANY-IL201207006835

PATIENT
  Sex: Male
  Weight: 53 kg

DRUGS (8)
  1. PLACEBO [Suspect]
     Indication: PANCREATIC CARCINOMA
     Dosage: 1 DF, OTHER
     Route: 042
     Dates: start: 20120704, end: 20120718
  2. PLACEBO [Suspect]
     Dosage: 1 DF, OTHER
     Route: 042
     Dates: start: 20120722
  3. GEMCITABINE HYDROCHLORIDE [Suspect]
     Dosage: 1000 MG/M2, OTHER
     Route: 042
     Dates: start: 20120722
  4. CLONEX [Concomitant]
     Indication: PANIC DISORDER
     Dosage: UNK
     Dates: start: 20120701
  5. GEMCITABINE HYDROCHLORIDE [Suspect]
     Indication: PANCREATIC CARCINOMA
     Dosage: 1000 MG/M2, OTHER
     Route: 042
     Dates: start: 20120704, end: 20120718
  6. ERLOTINIB HYDROCHLORIDE [Suspect]
     Indication: PANCREATIC CARCINOMA
     Dosage: 100 MG, QD
     Route: 048
     Dates: start: 20120704, end: 20120719
  7. ERLOTINIB HYDROCHLORIDE [Suspect]
     Dosage: 100 MG, QD
     Route: 048
     Dates: start: 20120722
  8. CARTIA                                  /HKG/ [Concomitant]
     Dosage: UNK
     Dates: start: 20120701, end: 20120721

REACTIONS (1)
  - CELLULITIS [None]
